FAERS Safety Report 24141841 (Version 2)
Quarter: 2024Q3

REPORT INFORMATION
  Report Type: Spontaneous
  Country: IN (occurrence: IN)
  Receive Date: 20240726
  Receipt Date: 20240808
  Transmission Date: 20241016
  Serious: Yes (Other)
  Sender: TEVA
  Company Number: IN-ABBVIE-5838055

PATIENT
  Age: 41 Year
  Sex: Male

DRUGS (3)
  1. ACITRETIN [Suspect]
     Active Substance: ACITRETIN
     Indication: Keratosis follicular
     Route: 065
  2. ACITRETIN [Suspect]
     Active Substance: ACITRETIN
     Indication: Keratosis follicular
     Route: 065
  3. ACITRETIN [Suspect]
     Active Substance: ACITRETIN
     Indication: Keratosis follicular
     Dosage: 20 MG/DAY FOR 1 WEEK EVERY MONTH
     Route: 065

REACTIONS (1)
  - Hypothyroidism [Recovering/Resolving]
